FAERS Safety Report 25658095 (Version 1)
Quarter: 2025Q3

REPORT INFORMATION
  Report Type: Spontaneous
  Country: US (occurrence: US)
  Receive Date: 20250808
  Receipt Date: 20250808
  Transmission Date: 20251021
  Serious: No
  Sender: Kenvue
  Company Number: US-KENVUE-20250706764

PATIENT
  Sex: Female

DRUGS (1)
  1. WOMENS ROGAINE [Suspect]
     Active Substance: MINOXIDIL
     Indication: Alopecia
     Dosage: ONE PUMP HALF ON EACH SIDE BECAUSE IT^S TOWARDS THE FRONT WHERE THERE IS THINNING, ONCE A DAY
     Route: 061
     Dates: start: 202503, end: 2025

REACTIONS (3)
  - Ear pain [Recovering/Resolving]
  - Drug hypersensitivity [Recovering/Resolving]
  - Incorrect dose administered [Unknown]

NARRATIVE: CASE EVENT DATE: 20250301
